FAERS Safety Report 10188371 (Version 1)
Quarter: 2014Q2

REPORT INFORMATION
  Report Type: Report from Study
  Country: CA (occurrence: CA)
  Receive Date: 20140522
  Receipt Date: 20140522
  Transmission Date: 20141212
  Serious: Yes (Hospitalization)
  Sender: FDA-Public Use
  Company Number: CA-JNJFOC-20140507478

PATIENT
  Age: 44 Year
  Sex: Female

DRUGS (5)
  1. STELARA [Suspect]
     Indication: CROHN^S DISEASE
     Route: 058
     Dates: start: 20130912
  2. PARIET [Concomitant]
     Dosage: AS REQUIRED
     Route: 065
  3. TIZANIDINE [Concomitant]
     Dosage: AS REQUIRED
     Route: 065
  4. EFFEXOR [Concomitant]
     Dosage: AS REQUIRED
     Route: 065
  5. OXYCODONE [Concomitant]
     Dosage: AS REQUIRED
     Route: 065

REACTIONS (2)
  - Intestinal obstruction [Recovered/Resolved]
  - Off label use [Unknown]
